FAERS Safety Report 6745262-0 (Version None)
Quarter: 2010Q2

REPORT INFORMATION
  Report Type: 
  Country: None (occurrence: None)
  Receive Date: 20100528
  Receipt Date: 20100518
  Transmission Date: 20101027
  Serious: No
  Sender: FDA-Public Use
  Company Number: US-BIOGENIDEC-2010BI016904

PATIENT
  Age: 22 Year
  Sex: Female

DRUGS (2)
  1. TYSABRI [Suspect]
     Indication: MULTIPLE SCLEROSIS
     Route: 042
     Dates: start: 20080601, end: 20080701
  2. TYSABRI [Suspect]
     Route: 042
     Dates: start: 20100201

REACTIONS (7)
  - BRONCHITIS [None]
  - EAR INFECTION [None]
  - FATIGUE [None]
  - KIDNEY INFECTION [None]
  - MEMORY IMPAIRMENT [None]
  - SINUSITIS [None]
  - THYROID CYST [None]
